FAERS Safety Report 10261895 (Version 1)
Quarter: 2014Q2

REPORT INFORMATION
  Report Type: Report from Study
  Country: MX (occurrence: MX)
  Receive Date: 20140626
  Receipt Date: 20140626
  Transmission Date: 20141212
  Serious: Yes (Death)
  Sender: FDA-Public Use
  Company Number: PHHY2014MX078974

PATIENT
  Age: 91 Year
  Sex: Male

DRUGS (1)
  1. ACLASTA [Suspect]
     Indication: OSTEOPOROSIS
     Dosage: 1 DF (5MG/100ML), ANNUALLY
     Route: 042
     Dates: end: 201403

REACTIONS (1)
  - Urinary tract infection [Fatal]
